FAERS Safety Report 6217990-7 (Version None)
Quarter: 2009Q2

REPORT INFORMATION
  Report Type: 
  Country: None (occurrence: None)
  Receive Date: 20090608
  Receipt Date: 20090521
  Transmission Date: 20091009
  Serious: Yes (Hospitalization)
  Sender: FDA-Public Use
  Company Number: HU-PFIZER INC-2009218085

PATIENT

DRUGS (1)
  1. FLUCONAZOLE [Suspect]

REACTIONS (2)
  - ANGIOEDEMA [None]
  - URTICARIA [None]
